FAERS Safety Report 10136828 (Version 2)
Quarter: 2015Q1

REPORT INFORMATION
  Report Type: Spontaneous
  Country: US (occurrence: None)
  Receive Date: 20140425
  Receipt Date: 20150224
  Transmission Date: 20150720
  Serious: Yes (Hospitalization)
  Sender: FDA-Public Use
  Company Number: UTC-047318

PATIENT
  Age: 37 Year
  Sex: Female
  Weight: 145 kg

DRUGS (2)
  1. REMODULIN [Suspect]
     Active Substance: TREPROSTINIL
     Indication: PULMONARY ARTERIAL HYPERTENSION
     Dosage: 28.8 UG/KG (0.02 UG/KG, 1 IN 1 D
     Route: 041
     Dates: start: 20130308
  2. ADCIRCA (TADALAFIL) (UNKNOWN) [Concomitant]

REACTIONS (2)
  - Fluid retention [None]
  - Dyspnoea [None]

NARRATIVE: CASE EVENT DATE: 20140407
